FAERS Safety Report 25610570 (Version 4)
Quarter: 2025Q4

REPORT INFORMATION
  Report Type: Spontaneous
  Country: EU (occurrence: EU)
  Receive Date: 20250728
  Receipt Date: 20251016
  Transmission Date: 20260118
  Serious: Yes (Life-Threatening, Other)
  Sender: ORGANON
  Company Number: EU-MYLANLABS-2025M1055798

PATIENT
  Age: 62 Year
  Sex: Female

DRUGS (7)
  1. DESLORATADINE [Suspect]
     Active Substance: DESLORATADINE
     Indication: Food allergy
     Dosage: 15 MILLIGRAM (5 MILLIGRAM X 3 TABLETS)
     Dates: start: 20250626, end: 20250626
  2. DESLORATADINE [Suspect]
     Active Substance: DESLORATADINE
     Indication: Hypersensitivity
  3. EPIPEN [Suspect]
     Active Substance: EPINEPHRINE
     Indication: Hypersensitivity
     Dosage: UNK
  4. EPIPEN [Suspect]
     Active Substance: EPINEPHRINE
     Indication: Food allergy
  5. EPIPEN [Suspect]
     Active Substance: EPINEPHRINE
     Indication: Anaphylactic reaction
  6. BETAPRED [Suspect]
     Active Substance: BETAMETHASONE SODIUM PHOSPHATE
     Indication: Hypersensitivity
     Dosage: 5 DOSAGE FORM
     Dates: start: 20250626, end: 20250626
  7. BETAPRED [Suspect]
     Active Substance: BETAMETHASONE SODIUM PHOSPHATE
     Indication: Food allergy

REACTIONS (8)
  - Drug ineffective [Unknown]
  - Drug dose omission by device [Unknown]
  - Device failure [Unknown]
  - Incorrect dose administered [Unknown]
  - Accidental exposure to product [Unknown]
  - Wrong technique in device usage process [Unknown]
  - Product quality issue [Unknown]
  - Injury associated with device [Recovering/Resolving]

NARRATIVE: CASE EVENT DATE: 20250626
